FAERS Safety Report 4461650-X (Version None)
Quarter: 2004Q3

REPORT INFORMATION
  Report Type: 
  Country: None (occurrence: None)
  Receive Date: 20040927
  Receipt Date: 20040927
  Transmission Date: 20050211
  Serious: Yes (Other)
  Sender: FDA-Public Use
  Company Number: None

PATIENT
  Age: 72 Year
  Sex: Female
  Weight: 85.5 kg

DRUGS (4)
  1. IRESSA [Suspect]
     Indication: BREAST CANCER
     Dosage: 250 MG PO QD
     Route: 048
     Dates: start: 20040729, end: 20040923
  2. ALEVE [Concomitant]
  3. MULTIVITAMIN [Concomitant]
  4. DIFLUCAN [Concomitant]

REACTIONS (3)
  - ALANINE AMINOTRANSFERASE INCREASED [None]
  - ASPARTATE AMINOTRANSFERASE INCREASED [None]
  - LIVER FUNCTION TEST ABNORMAL [None]
